FAERS Safety Report 8115337 (Version 3)
Quarter: 2012Q4

REPORT INFORMATION
  Report Type: 
  Country: US (occurrence: US)
  Receive Date: 20110831
  Receipt Date: 20121126
  Transmission Date: 20130627
  Serious: Yes (Hospitalization)
  Sender: FDA-Public Use
  Company Number: US-BAYER-2011-079184

PATIENT
  Age: 24 Year
  Sex: Female
  Weight: 60 kg

DRUGS (7)
  1. YAZ [Suspect]
     Indication: CONTRACEPTION
     Dosage: UNK
     Dates: start: 200806, end: 20101004
  2. YAZ [Suspect]
     Indication: MENORRHAGIA
  3. NSAID^S [Concomitant]
  4. ANTIBIOTICS [Concomitant]
  5. VITAMIN C [Concomitant]
     Dosage: UNK
     Dates: start: 20100902
  6. CALCIUM [Concomitant]
     Dosage: UNK
     Dates: start: 20100902
  7. FLUTICASONE PROPIONATE [Concomitant]
     Dosage: 50 ?g, UNK
     Route: 045

REACTIONS (6)
  - Pulmonary embolism [Recovered/Resolved]
  - Injury [Recovered/Resolved]
  - Pain [Recovered/Resolved]
  - Anhedonia [None]
  - Psychological trauma [None]
  - Anxiety [None]
